FAERS Safety Report 16818586 (Version 1)
Quarter: 2019Q3

REPORT INFORMATION
  Report Type: Spontaneous
  Country: JP (occurrence: JP)
  Receive Date: 20190917
  Receipt Date: 20190917
  Transmission Date: 20191005
  Serious: Yes (Hospitalization, Disabling, Other)
  Sender: FDA-Public Use
  Company Number: JP-AMGEN-JPNSP2019106030

PATIENT
  Age: 80 Year
  Sex: Male
  Weight: 48 kg

DRUGS (10)
  1. EVENITY [Suspect]
     Active Substance: ROMOSOZUMAB-AQQG
     Indication: OSTEOPOROSIS
     Dosage: 210 MILLIGRAM
     Route: 058
     Dates: start: 20190423, end: 2019
  2. BAYASPIRIN [Concomitant]
     Active Substance: ASPIRIN
     Dosage: 100 MILLIGRAM, QD (AFTER BREAKFAST)
  3. LANSOPRAZOLE. [Concomitant]
     Active Substance: LANSOPRAZOLE
     Dosage: 15 MILLIGRAM, QD (AFTER BREAKFAST)
  4. WELL BI [Concomitant]
     Dosage: 2.5 MILLIGRAM, QD (AFTER BREAKFAST)
  5. NAFTOPIDIL [Concomitant]
     Active Substance: NAFTOPIDIL
     Dosage: 75 MILLIGRAM, QD (AFTER BREAKFAST)
  6. EPAROSE [EICOSAPENTAENOIC ACID ETHYL ESTER] [Concomitant]
     Dosage: 600 MILLIGRAM, BID (AFTER BREAKFAST AND AFTERDINNER)
  7. GLACTIV [Concomitant]
     Active Substance: SITAGLIPTIN
     Dosage: 50 MILLIGRAM, QD (AFTER BREAKFAST)
  8. AVOLVE [Concomitant]
     Active Substance: DUTASTERIDE
     Dosage: 0.5 MILLIGRAM, QD (AFTER BREAKFAST)
  9. ATORVASTATIN [ATORVASTATIN CALCIUM] [Concomitant]
     Active Substance: ATORVASTATIN CALCIUM
     Dosage: 10 MILLIGRAM, QD (AFTER BREAKFAST)
  10. AMLODIPINE [AMLODIPINE BESILATE] [Concomitant]
     Active Substance: AMLODIPINE BESYLATE
     Dosage: 10 MILLIGRAM, QD (AFTER BREAKFAST)

REACTIONS (2)
  - Moyamoya disease [Not Recovered/Not Resolved]
  - Cerebral infarction [Not Recovered/Not Resolved]

NARRATIVE: CASE EVENT DATE: 20190527
